FAERS Safety Report 9083634 (Version 1)
Quarter: 2013Q1

REPORT INFORMATION
  Report Type: Spontaneous
  Country: PR (occurrence: PR)
  Receive Date: 20130131
  Receipt Date: 20130131
  Transmission Date: 20140127
  Serious: No
  Sender: FDA-Public Use
  Company Number: PR-ABBOTT-12P-131-0994686-00

PATIENT
  Age: 54 Year
  Sex: Male
  Weight: 122.58 kg

DRUGS (5)
  1. HUMIRA [Suspect]
     Indication: RHEUMATOID ARTHRITIS
     Route: 058
     Dates: start: 201104
  2. ENALAPRIL [Concomitant]
     Indication: HYPERTENSION
     Route: 048
  3. VYTORIN [Concomitant]
     Indication: HYPERLIPIDAEMIA
     Dosage: 10/40 MILLIGRAMS
     Route: 048
  4. JENUMAT [Concomitant]
     Indication: DIABETES MELLITUS
     Dosage: 60/500 MILLIG
     Route: 048
  5. PLAQUENIL [Concomitant]
     Indication: RHEUMATOID ARTHRITIS
     Dosage: 800 MILLIGRAMS DAILY
     Route: 048

REACTIONS (2)
  - Injection site pain [Recovered/Resolved]
  - Injection site pain [Recovered/Resolved]
